FAERS Safety Report 25650066 (Version 1)
Quarter: 2025Q3

REPORT INFORMATION
  Report Type: Spontaneous
  Country: US (occurrence: None)
  Receive Date: 20250805
  Receipt Date: 20250805
  Transmission Date: 20251021
  Serious: No
  Sender: FDA-CTU
  Company Number: None

PATIENT
  Sex: Female

DRUGS (1)
  1. SCEMBLIX [Suspect]
     Active Substance: ASCIMINIB HYDROCHLORIDE
     Indication: Chronic myeloid leukaemia
     Dosage: 80 MG DAILY ORAL
     Route: 048
     Dates: start: 20241226

REACTIONS (5)
  - Blood pressure increased [None]
  - Hypoaesthesia oral [None]
  - Abdominal pain upper [None]
  - Abdominal discomfort [None]
  - Viral infection [None]
